FAERS Safety Report 10678289 (Version 1)
Quarter: 2014Q4

REPORT INFORMATION
  Report Type: Spontaneous
  Country: CH (occurrence: CH)
  Receive Date: 20141229
  Receipt Date: 20141229
  Transmission Date: 20150529
  Serious: Yes (Hospitalization, Other)
  Sender: FDA-Public Use
  Company Number: CH-TEVA-530467ISR

PATIENT
  Age: 74 Year
  Sex: Male
  Weight: 71.1 kg

DRUGS (10)
  1. TEMESTA 1 MG [Concomitant]
     Indication: INSOMNIA
     Dosage: CONTINUING, AS RESERVE IN CASE OF INSOMNIA
     Route: 048
  2. ALDACTONE [Suspect]
     Active Substance: SPIRONOLACTONE
     Dosage: 25 MILLIGRAM DAILY;
     Route: 048
     Dates: start: 201409
  3. TOREM 10 TABLETTEN [Suspect]
     Active Substance: TORSEMIDE
     Dosage: 10 MILLIGRAM DAILY;
     Route: 048
     Dates: start: 201409, end: 20141025
  4. CONCOR 2.5 MG [Concomitant]
     Dosage: 2.5 MILLIGRAM DAILY; CONTINUING
     Route: 048
  5. METFORMIN-MEPHA 500 LACTAB [Suspect]
     Active Substance: METFORMIN HYDROCHLORIDE
     Dosage: 850 MILLIGRAM DAILY; START DATE UNKNOWN
     Route: 048
  6. ASPIRIN CARDIO 100 MG [Concomitant]
     Dosage: 100 MILLIGRAM DAILY; CONTINUING
     Route: 048
  7. TRIATEC 5 MG TABLETTEN [Suspect]
     Active Substance: RAMIPRIL
     Dosage: 5 MILLIGRAM DAILY;
     Route: 048
     Dates: start: 201409, end: 20141025
  8. CORDARONE [Concomitant]
     Active Substance: AMIODARONE HYDROCHLORIDE
     Dosage: 200 MILLIGRAM DAILY; CONTINUING
     Route: 048
  9. METFORMIN-MEPHA 500 LACTAB [Suspect]
     Active Substance: METFORMIN HYDROCHLORIDE
     Dosage: 1000 MILLIGRAM DAILY; START DATE UNKNOWN
     Route: 048
  10. CRESTOR 10 MG [Concomitant]
     Dosage: 10 MILLIGRAM DAILY; CONTINUING
     Route: 048

REACTIONS (6)
  - Dry mouth [Recovered/Resolved]
  - Acute kidney injury [Recovered/Resolved]
  - Dysphagia [Recovered/Resolved]
  - Hyponatraemia [Recovered/Resolved]
  - Gastritis erosive [Unknown]
  - Vitamin B12 decreased [Recovered/Resolved]

NARRATIVE: CASE EVENT DATE: 201410
